FAERS Safety Report 6198952-5 (Version None)
Quarter: 2009Q2

REPORT INFORMATION
  Report Type: 
  Country: None (occurrence: None)
  Receive Date: 20090522
  Receipt Date: 20090521
  Transmission Date: 20091009
  Serious: No
  Sender: FDA-Public Use
  Company Number: US-B.I. PHARMACEUTICALS,INC./RIDGEFIELD-2009-BP-05179BP

PATIENT
  Sex: Male

DRUGS (15)
  1. SPIRIVA [Suspect]
     Indication: CHRONIC OBSTRUCTIVE PULMONARY DISEASE
     Dosage: 18MCG
     Route: 055
     Dates: start: 20081201
  2. SPIRIVA [Suspect]
     Indication: BRONCHITIS CHRONIC
  3. LIPITOR [Concomitant]
     Indication: BLOOD CHOLESTEROL INCREASED
     Dosage: 10MG
  4. TOPROL-XL [Concomitant]
     Indication: VASCULAR GRAFT
     Dosage: 50MG
  5. MICARDIS HCT [Concomitant]
     Indication: HYPERTENSION
  6. NORVASC [Concomitant]
     Indication: HYPERTENSION
     Dosage: 5MG
  7. SULFASALAZINE [Concomitant]
     Indication: DIVERTICULITIS
  8. FOLIC ACID [Concomitant]
     Indication: DIVERTICULITIS
     Dosage: 1MG
  9. BONIVA [Concomitant]
     Indication: OSTEOPOROSIS
  10. FLONASE [Concomitant]
     Indication: SINUSITIS
  11. SYMBICORT [Concomitant]
     Indication: CHRONIC OBSTRUCTIVE PULMONARY DISEASE
     Route: 055
  12. PROVENTIL [Concomitant]
     Indication: CHRONIC OBSTRUCTIVE PULMONARY DISEASE
  13. ALBUTEROL [Concomitant]
     Indication: CHRONIC OBSTRUCTIVE PULMONARY DISEASE
  14. ASPIRIN [Concomitant]
     Indication: PROPHYLAXIS
     Dosage: 81MG
  15. CALCIUM [Concomitant]
     Dosage: 1200MG

REACTIONS (2)
  - APHONIA [None]
  - DYSPHONIA [None]
